FAERS Safety Report 17483405 (Version 1)
Quarter: 2020Q1

REPORT INFORMATION
  Report Type: Spontaneous
  Country: US (occurrence: US)
  Receive Date: 20200229
  Receipt Date: 20200229
  Transmission Date: 20200409
  Serious: Yes (Disabling)
  Sender: FDA-Public Use
  Company Number: None

PATIENT
  Age: 60 Year
  Sex: Female
  Weight: 51.3 kg

DRUGS (7)
  1. VITAMIN B COMPLEX [Concomitant]
     Active Substance: CYANOCOBALAMIN\DEXPANTHENOL\NIACINAMIDE\PYRIDOXINE HYDROCHLORIDE\RIBOFLAVIN 5^-PHOSPHATE SODIUM\THIAMINE HYDROCHLORIDE\VITAMIN B COMPLEX
  2. VITAMIN D3 [Concomitant]
     Active Substance: CHOLECALCIFEROL
  3. MAGNESIUM [Concomitant]
     Active Substance: MAGNESIUM
  4. B1 [Concomitant]
  5. COENZYME Q10 [Concomitant]
     Active Substance: UBIDECARENONE
  6. COLLAGEN [Concomitant]
     Active Substance: COLLAGEN
  7. CIPROFLOXACIN. [Suspect]
     Active Substance: CIPROFLOXACIN
     Indication: ANTIBIOTIC THERAPY
     Dosage: ?          QUANTITY:20 TABLET(S);?
     Route: 048
     Dates: start: 20190924, end: 20190927

REACTIONS (10)
  - Toxicity to various agents [None]
  - Back pain [None]
  - Muscle spasms [None]
  - Arthralgia [None]
  - Suicidal ideation [None]
  - Paraesthesia [None]
  - Depression [None]
  - Fatigue [None]
  - Pain in extremity [None]
  - Neck pain [None]

NARRATIVE: CASE EVENT DATE: 20190924
